FAERS Safety Report 4877095-4 (Version None)
Quarter: 2006Q1

REPORT INFORMATION
  Report Type: 
  Country: None (occurrence: None)
  Receive Date: 20060110
  Receipt Date: 20060104
  Transmission Date: 20060701
  Serious: Yes (Other)
  Sender: FDA-Public Use
  Company Number: CA-MERCK-0601CAN00033

PATIENT
  Sex: Male

DRUGS (2)
  1. ZETIA [Suspect]
     Indication: HYPERCHOLESTEROLAEMIA
     Route: 048
     Dates: start: 20050101
  2. ZOCOR [Concomitant]
     Route: 048

REACTIONS (2)
  - ADVERSE EVENT [None]
  - HEPATIC ENZYME INCREASED [None]
